FAERS Safety Report 10164045 (Version 2)
Quarter: 2014Q2

REPORT INFORMATION
  Report Type: Spontaneous
  Country: US (occurrence: US)
  Receive Date: 20140510
  Receipt Date: 20140510
  Transmission Date: 20141212
  Serious: No
  Sender: FDA-Public Use
  Company Number: US-BRISTOL-MYERS SQUIBB COMPANY-19850890

PATIENT
  Age: 63 Year
  Sex: Female
  Weight: 73.01 kg

DRUGS (2)
  1. BYETTA [Suspect]
     Route: 058
  2. METFORMIN HCL TABS [Concomitant]

REACTIONS (1)
  - Weight decreased [Unknown]
